FAERS Safety Report 9754396 (Version 1)
Quarter: 2013Q4

REPORT INFORMATION
  Report Type: Spontaneous
  Country: IT (occurrence: IT)
  Receive Date: 20131213
  Receipt Date: 20131213
  Transmission Date: 20140711
  Serious: Yes (Other)
  Sender: FDA-Public Use
  Company Number: IT-WATSON-2013-22315

PATIENT
  Age: 81 Year
  Sex: Female

DRUGS (8)
  1. LERCANIDIPINE HYDROCHLORIDE (UNKNOWN) [Suspect]
     Indication: HYPERTENSION
     Dosage: 20 MG, DAILY
     Route: 048
     Dates: start: 20131111, end: 20131112
  2. LERCANIDIPINE HYDROCHLORIDE (UNKNOWN) [Suspect]
     Dosage: UNK
     Route: 048
     Dates: start: 20131112
  3. VELAMOX /00249601/ [Suspect]
     Indication: ERYSIPELAS
     Dosage: 3 G, DAILY
     Route: 048
     Dates: start: 20131111, end: 20131112
  4. LASITONE [Suspect]
     Indication: HYPERTENSION
     Dosage: 1 DF, DAILY
     Route: 048
     Dates: start: 20131111, end: 20131112
  5. DOXAZOSIN (UNKNOWN) [Suspect]
     Indication: HYPERTENSION
     Dosage: 2 MG, DAILY
     Route: 048
     Dates: start: 20131112, end: 20131112
  6. CARDIOASPIRIN [Concomitant]
     Indication: HYPERTENSION
     Dosage: 100 MG, UNK
     Dates: start: 20120101, end: 20131112
  7. OLMESARTAN MEDOXOMIL [Concomitant]
     Indication: HYPERTENSION
     Dosage: UNK
     Dates: start: 20120101, end: 20131112
  8. ATENOLOL [Concomitant]
     Indication: HYPERTENSION
     Dosage: UNK
     Dates: start: 20120101, end: 20131112

REACTIONS (3)
  - Overdose [Recovered/Resolved]
  - Hypotension [Recovered/Resolved]
  - Diarrhoea [Recovered/Resolved]
